FAERS Safety Report 7576472-0 (Version None)
Quarter: 2011Q2

REPORT INFORMATION
  Report Type: 
  Country: None (occurrence: None)
  Receive Date: 20110624
  Receipt Date: 20110624
  Transmission Date: 20111010
  Serious: Yes (Disabling)
  Sender: FDA-Public Use
  Company Number: None

PATIENT
  Age: 59 Year
  Sex: Male
  Weight: 81.6475 kg

DRUGS (1)
  1. PROVENTIL [Suspect]
     Dosage: 2 PUFFS EVERY 4 HOURS INHAL
     Route: 055
     Dates: start: 20110323, end: 20110623

REACTIONS (2)
  - DRUG EFFECT DECREASED [None]
  - PRODUCT QUALITY ISSUE [None]
